FAERS Safety Report 21791247 (Version 1)
Quarter: 2022Q4

REPORT INFORMATION
  Report Type: Spontaneous
  Country: US (occurrence: None)
  Receive Date: 20221227
  Receipt Date: 20221227
  Transmission Date: 20230113
  Serious: Yes (Other)
  Sender: FDA-Public Use
  Company Number: None

PATIENT
  Sex: Female

DRUGS (1)
  1. PROGRAF [Suspect]
     Active Substance: TACROLIMUS
     Indication: Liver transplant
     Dosage: OTHER QUANTITY : 3MG,4MG;?OTHER FREQUENCY : OTHER;?
     Route: 048

REACTIONS (1)
  - Liver transplant [None]
